FAERS Safety Report 12209226 (Version 2)
Quarter: 2016Q1

REPORT INFORMATION
  Report Type: Spontaneous
  Country: TR (occurrence: TR)
  Receive Date: 20160324
  Receipt Date: 20160325
  Transmission Date: 20160526
  Serious: Yes (Other)
  Sender: FDA-Public Use
  Company Number: PHHY2016TR036366

PATIENT
  Age: 25 Year
  Sex: Female

DRUGS (3)
  1. CARBAMAZEPINE. [Suspect]
     Active Substance: CARBAMAZEPINE
     Indication: LAFORA^S MYOCLONIC EPILEPSY
     Dosage: 1200 MG, QD
     Route: 065
  2. LAMOTRIGINE. [Suspect]
     Active Substance: LAMOTRIGINE
     Indication: LAFORA^S MYOCLONIC EPILEPSY
     Dosage: 400 MG, QD
     Route: 065
  3. LEVETIRACETAM. [Concomitant]
     Active Substance: LEVETIRACETAM
     Indication: LAFORA^S MYOCLONIC EPILEPSY
     Dosage: 3000 MG, QD
     Route: 065

REACTIONS (9)
  - Product use issue [Unknown]
  - Cognitive disorder [Not Recovered/Not Resolved]
  - Dysstasia [Unknown]
  - Myoclonus [Recovering/Resolving]
  - Generalised tonic-clonic seizure [Recovering/Resolving]
  - Extrapyramidal disorder [Unknown]
  - Speech disorder [Not Recovered/Not Resolved]
  - Concomitant disease aggravated [Unknown]
  - Lafora^s myoclonic epilepsy [Unknown]
